FAERS Safety Report 7772963-8 (Version None)
Quarter: 2011Q3

REPORT INFORMATION
  Report Type: 
  Country: None (occurrence: None)
  Receive Date: 20110922
  Receipt Date: 20100820
  Transmission Date: 20111222
  Serious: No
  Sender: FDA-Public Use
  Company Number: US-ASTRAZENECA-2010SE39291

PATIENT
  Age: 53 Year
  Sex: Male
  Weight: 70.3 kg

DRUGS (4)
  1. SEROQUEL [Suspect]
     Indication: BIPOLAR DISORDER
     Route: 048
     Dates: start: 20080101
  2. SEROQUEL [Suspect]
     Indication: SLEEP DISORDER
     Route: 048
     Dates: start: 20080101
  3. NEURONTIN [Concomitant]
     Indication: NEUROPATHY PERIPHERAL
  4. KLONOPIN [Concomitant]
     Indication: ANXIETY

REACTIONS (3)
  - SOMNOLENCE [None]
  - THERAPEUTIC RESPONSE UNEXPECTED [None]
  - DISORIENTATION [None]
